FAERS Safety Report 5194801-2 (Version None)
Quarter: 2006Q4

REPORT INFORMATION
  Report Type: 
  Country: None (occurrence: None)
  Receive Date: 20061229
  Receipt Date: 20061218
  Transmission Date: 20070319
  Serious: Yes (Other)
  Sender: FDA-Public Use
  Company Number: US-BRISTOL-MYERS SQUIBB COMPANY-13626502

PATIENT
  Sex: Male

DRUGS (3)
  1. REYATAZ [Suspect]
     Dates: start: 20040401
  2. VIREAD [Suspect]
     Dates: start: 20040401
  3. RITONAVIR [Suspect]
     Dates: start: 20040401

REACTIONS (1)
  - HEPATITIS CHOLESTATIC [None]
